FAERS Safety Report 10581238 (Version 1)
Quarter: 2014Q4

REPORT INFORMATION
  Report Type: Spontaneous
  Country: US (occurrence: None)
  Receive Date: 20141110
  Receipt Date: 20141110
  Transmission Date: 20150529
  Serious: Yes (Other)
  Sender: FDA-Public Use
  Company Number: FK201404911

PATIENT
  Sex: Male

DRUGS (1)
  1. METHOTREXATE FOR INJECTION, USP (METHOTREXATE SODIUM) (METHOTREXATE SODIUM) [Suspect]
     Active Substance: METHOTREXATE
     Indication: CENTRAL NERVOUS SYSTEM LYMPHOMA
     Route: 040

REACTIONS (2)
  - Ischaemic stroke [None]
  - Renal failure [None]
